FAERS Safety Report 6176970-0 (Version None)
Quarter: 2009Q2

REPORT INFORMATION
  Report Type: 
  Country: None (occurrence: None)
  Receive Date: 20090501
  Receipt Date: 20090129
  Transmission Date: 20091009
  Serious: Yes (Other)
  Sender: FDA-Public Use
  Company Number: GB-ALEXION-A200900086

PATIENT

DRUGS (1)
  1. SOLIRIS [Suspect]
     Indication: PAROXYSMAL NOCTURNAL HAEMOGLOBINURIA
     Dosage: UNK
     Route: 042
     Dates: start: 20050101

REACTIONS (5)
  - ARTHROPATHY [None]
  - C-REACTIVE PROTEIN INCREASED [None]
  - LETHARGY [None]
  - PYREXIA [None]
  - RASH GENERALISED [None]
